FAERS Safety Report 7740366-8 (Version None)
Quarter: 2011Q3

REPORT INFORMATION
  Report Type: 
  Country: None (occurrence: None)
  Receive Date: 20110909
  Receipt Date: 20110829
  Transmission Date: 20111222
  Serious: Yes (Hospitalization)
  Sender: FDA-Public Use
  Company Number: US-BAYER-2011-009669

PATIENT
  Age: 18 Year
  Sex: Female

DRUGS (2)
  1. ALBUTEROL SULFATE AUTOHALER [Concomitant]
  2. YAZ [Suspect]
     Indication: CONTRACEPTION
     Dosage: UNK
     Dates: start: 20080325, end: 20091127

REACTIONS (8)
  - PANCREATITIS [None]
  - ABDOMINAL PAIN [None]
  - CHOLELITHIASIS [None]
  - APHAGIA [None]
  - VOMITING [None]
  - GALLBLADDER DISORDER [None]
  - PAIN [None]
  - EMOTIONAL DISTRESS [None]
